FAERS Safety Report 21831026 (Version 1)
Quarter: 2023Q1

REPORT INFORMATION
  Report Type: Report from Study
  Country: IT (occurrence: IT)
  Receive Date: 20230106
  Receipt Date: 20230106
  Transmission Date: 20230418
  Serious: Yes (Other)
  Sender: FDA-Public Use
  Company Number: None

PATIENT
  Age: 8 Year
  Sex: Female
  Weight: 25 kg

DRUGS (5)
  1. VINCRISTINE [Suspect]
     Active Substance: VINCRISTINE
     Indication: B precursor type acute leukaemia
     Dosage: 1.40 MG/DAY ON 4, 11, 18, 11/25/22 , VINCRISTINA TEVA ITALIA
     Dates: start: 20221104, end: 20221125
  2. GLIVEC [Suspect]
     Active Substance: IMATINIB MESYLATE
     Indication: B precursor type acute leukaemia
     Dosage: 325 MILLIGRAM DAILY; 325 MG/DAY
     Dates: start: 20221111
  3. ONCASPAR [Suspect]
     Active Substance: PEGASPARGASE
     Indication: B precursor type acute leukaemia
     Dosage: 2400 IU/DAY ON 08 AND 11/22/22
     Dates: start: 20221108, end: 20221122
  4. DAUNORUBICIN [Suspect]
     Active Substance: DAUNORUBICIN
     Indication: B precursor type acute leukaemia
     Dosage: 28.50 MG/DAY ON 4, 11, 18, 25/11/22
     Dates: start: 20221104, end: 20221125
  5. PREDNISONE [Concomitant]
     Active Substance: PREDNISONE
     Indication: B precursor type acute leukaemia
     Dosage: 55 MG/DAY FROM 05/11/22 TO 11/11/22 , 60 MG/DAY FROM 11/11 TO 25/11/22
     Dates: start: 20221104, end: 20221125

REACTIONS (2)
  - Pancytopenia [Recovering/Resolving]
  - Anaemia [Not Recovered/Not Resolved]

NARRATIVE: CASE EVENT DATE: 20221122
